FAERS Safety Report 19307709 (Version 1)
Quarter: 2021Q2

REPORT INFORMATION
  Report Type: Spontaneous
  Country: US (occurrence: US)
  Receive Date: 20210526
  Receipt Date: 20210526
  Transmission Date: 20210717
  Serious: Yes (Death, Hospitalization)
  Sender: FDA-Public Use
  Company Number: None

PATIENT
  Age: 19 Year
  Sex: Female
  Weight: 110.7 kg

DRUGS (7)
  1. ONCASPAR [Suspect]
     Active Substance: PEGASPARGASE
     Dates: end: 20210506
  2. PREDNISONE. [Suspect]
     Active Substance: PREDNISONE
     Dates: end: 20210518
  3. VINCRISTINE SULFATE. [Suspect]
     Active Substance: VINCRISTINE SULFATE
     Dates: end: 20210510
  4. LEUCOVORIN CALCIUM. [Suspect]
     Active Substance: LEUCOVORIN CALCIUM
     Dates: end: 20210512
  5. CYTARABINE. [Suspect]
     Active Substance: CYTARABINE
     Dates: end: 20210503
  6. PREDNISOLONE. [Suspect]
     Active Substance: PREDNISOLONE
     Dates: end: 20210523
  7. METHOTREXATE. [Suspect]
     Active Substance: METHOTREXATE
     Dates: end: 20210510

REACTIONS (6)
  - Renal impairment [None]
  - Respiratory distress [None]
  - Blood triglycerides increased [None]
  - Acute hepatic failure [None]
  - Liver injury [None]
  - Condition aggravated [None]

NARRATIVE: CASE EVENT DATE: 20210523
